APPROVED DRUG PRODUCT: TOPOTECAN HYDROCHLORIDE
Active Ingredient: TOPOTECAN HYDROCHLORIDE
Strength: EQ 4MG BASE/4ML (EQ 1MG BASE/ML)
Dosage Form/Route: SOLUTION;INTRAVENOUS
Application: N200582 | Product #001 | TE Code: AP
Applicant: HOSPIRA INC
Approved: Feb 2, 2011 | RLD: Yes | RS: Yes | Type: RX